FAERS Safety Report 7813562-9 (Version None)
Quarter: 2011Q4

REPORT INFORMATION
  Report Type: 
  Country: None (occurrence: None)
  Receive Date: 20111014
  Receipt Date: 20111010
  Transmission Date: 20120403
  Serious: No
  Sender: FDA-Public Use
  Company Number: US-BIOGENIDEC-2011BI038546

PATIENT
  Age: 57 Year
  Sex: Female

DRUGS (4)
  1. AVONEX [Concomitant]
     Indication: MULTIPLE SCLEROSIS
     Route: 030
     Dates: start: 20100801
  2. AVONEX [Concomitant]
     Route: 030
     Dates: start: 20090306, end: 20100717
  3. TYSABRI [Suspect]
     Indication: MULTIPLE SCLEROSIS
     Route: 042
     Dates: start: 20100831
  4. TYSABRI [Suspect]
     Route: 042
     Dates: start: 20050222, end: 20050222

REACTIONS (1)
  - FATIGUE [None]
